FAERS Safety Report 21696212 (Version 1)
Quarter: 2022Q4

REPORT INFORMATION
  Report Type: Spontaneous
  Country: US (occurrence: None)
  Receive Date: 20221207
  Receipt Date: 20221207
  Transmission Date: 20230113
  Serious: No
  Sender: FDA-Public Use
  Company Number: None

PATIENT
  Age: 78 Year
  Sex: Male
  Weight: 96 kg

DRUGS (3)
  1. LISINOPRIL [Suspect]
     Active Substance: LISINOPRIL
     Dosage: FREQUENCY : TWICE A DAY;?
     Route: 048
     Dates: start: 20221001, end: 20221004
  2. SPIRONOLACTONE [Suspect]
     Active Substance: SPIRONOLACTONE
  3. SPIRONOLACTONE [Suspect]
     Active Substance: SPIRONOLACTONE
     Dates: start: 20220729, end: 20221004

REACTIONS (2)
  - Acute kidney injury [None]
  - Hyperkalaemia [None]

NARRATIVE: CASE EVENT DATE: 20221002
